FAERS Safety Report 5929249-3 (Version None)
Quarter: 2008Q4

REPORT INFORMATION
  Report Type: 
  Country: None (occurrence: None)
  Receive Date: 20081024
  Receipt Date: 20081021
  Transmission Date: 20090506
  Serious: Yes (Hospitalization, Other)
  Sender: FDA-Public Use
  Company Number: US-ASTRAZENECA-2008UW23439

PATIENT
  Age: 64 Year
  Sex: Female

DRUGS (18)
  1. ARIMIDEX [Suspect]
     Route: 048
     Dates: start: 20040701
  2. TRAMADOL HCL [Concomitant]
     Dosage: 1 TABLET FOUR TIMES A DAY
  3. EFFEXOR XR [Concomitant]
  4. NEURONTIN [Concomitant]
  5. VALIUM [Concomitant]
  6. LOTRONEX [Concomitant]
  7. LOMOTIL [Concomitant]
     Dosage: 2 TABLETS
  8. ZOFRAN [Concomitant]
  9. ZEGERID [Concomitant]
  10. VICODIN [Concomitant]
     Dosage: 1-2 TABLETS EVERY FOUR HOURS AS NEEDED
  11. DARVOCET [Concomitant]
     Dosage: 1 TABLET EVERY FOUR HOURS AS NEEDED
  12. CALTRATE WITH VITAMIN D [Concomitant]
  13. MICARDIS [Concomitant]
  14. BYSTOLIC [Concomitant]
  15. PROVIGIL [Concomitant]
  16. NASONEX [Concomitant]
     Dosage: 2 SPRAYS EACH NOSTRIL ONCE DAILY
  17. LIPITOR [Concomitant]
  18. ASPIRIN [Concomitant]

REACTIONS (10)
  - BLOOD PRESSURE FLUCTUATION [None]
  - CEREBROVASCULAR ACCIDENT [None]
  - CONCUSSION [None]
  - FALL [None]
  - LOSS OF CONSCIOUSNESS [None]
  - LYMPHOEDEMA [None]
  - MYOCARDIAL INFARCTION [None]
  - MYODESOPSIA [None]
  - PERIORBITAL HAEMATOMA [None]
  - SKULL FRACTURE [None]
